FAERS Safety Report 4733595-9 (Version None)
Quarter: 2005Q3

REPORT INFORMATION
  Report Type: 
  Country: None (occurrence: None)
  Receive Date: 20050729
  Receipt Date: 20050718
  Transmission Date: 20060218
  Serious: Yes (Hospitalization)
  Sender: FDA-Public Use
  Company Number: 2005104057

PATIENT
  Age: 62 Year
  Sex: Female
  Weight: 57 kg

DRUGS (2)
  1. BEXTRA [Suspect]
     Indication: ANALGESIC EFFECT
     Dosage: ORAL
     Route: 048
     Dates: start: 20050407, end: 20050412
  2. LEVOTHYROXINE SODIUM [Concomitant]

REACTIONS (1)
  - RASH MACULO-PAPULAR [None]
